FAERS Safety Report 19513366 (Version 1)
Quarter: 2021Q3

REPORT INFORMATION
  Report Type: Spontaneous
  Country: CN (occurrence: CN)
  Receive Date: 20210709
  Receipt Date: 20210709
  Transmission Date: 20211014
  Serious: Yes (Other)
  Sender: FDA-Public Use
  Company Number: CN-ROCHE-2863594

PATIENT
  Age: 48 Year
  Sex: Female

DRUGS (15)
  1. PERJETA [Suspect]
     Active Substance: PERTUZUMAB
     Route: 041
     Dates: start: 20190919
  2. PERJETA [Suspect]
     Active Substance: PERTUZUMAB
     Route: 065
     Dates: start: 20191121
  3. HERCEPTIN [Suspect]
     Active Substance: TRASTUZUMAB
     Route: 065
     Dates: start: 20191007
  4. PERJETA [Suspect]
     Active Substance: PERTUZUMAB
     Route: 065
     Dates: start: 20191017
  5. HERCEPTIN [Suspect]
     Active Substance: TRASTUZUMAB
     Indication: BREAST CANCER
     Route: 065
     Dates: start: 20190726
  6. HERCEPTIN [Suspect]
     Active Substance: TRASTUZUMAB
     Route: 065
     Dates: start: 20190819
  7. HERCEPTIN [Suspect]
     Active Substance: TRASTUZUMAB
     Route: 065
     Dates: start: 20191121
  8. PACLITAXEL. [Concomitant]
     Active Substance: PACLITAXEL
     Indication: BREAST CANCER
     Route: 041
     Dates: start: 20190919
  9. HERCEPTIN [Suspect]
     Active Substance: TRASTUZUMAB
     Dosage: 29?DEC?2019, 21?JAN?2020, 21?FEB?2020, 03?APR?2020, 01?MAY?2020, 08?JUN?2020:
     Route: 041
     Dates: start: 20191229, end: 20200608
  10. PACLITAXEL FOR INJECTION (ALBUMIN BOUND) [Concomitant]
     Active Substance: PACLITAXEL
     Indication: BREAST CANCER
     Dosage: 17?OCT?2019, 21?NOV?2019
  11. DOCETAXEL. [Concomitant]
     Active Substance: DOCETAXEL
     Indication: BREAST CANCER
     Dates: start: 20190726, end: 20190819
  12. PACLITAXEL. [Concomitant]
     Active Substance: PACLITAXEL
     Dosage: 29?DEC?2019, 21?JAN?2020, 21?FEB?2020, 03?APR?2020, 01?MAY?2020, 08?JUN?2020
     Route: 041
  13. HERCEPTIN [Suspect]
     Active Substance: TRASTUZUMAB
     Indication: BREAST CANCER
     Route: 041
     Dates: start: 20190919
  14. PERJETA [Suspect]
     Active Substance: PERTUZUMAB
     Indication: BREAST CANCER
     Route: 041
     Dates: start: 20190820
  15. PERJETA [Suspect]
     Active Substance: PERTUZUMAB
     Dosage: 29?DEC?2019, 21?JAN?2020, 21?FEB?2020, 03?APR?2020, 01?MAY?2020, 08?JUN?2020
     Route: 041
     Dates: start: 20191229, end: 20200608

REACTIONS (2)
  - Rash [Unknown]
  - Myelosuppression [Unknown]
